FAERS Safety Report 7732313-X (Version None)
Quarter: 2011Q3

REPORT INFORMATION
  Report Type: 
  Country: None (occurrence: None)
  Receive Date: 20110906
  Receipt Date: 20110829
  Transmission Date: 20111222
  Serious: No
  Sender: FDA-Public Use
  Company Number: US-AMGEN-USASP2011036566

PATIENT
  Sex: Female
  Weight: 65.306 kg

DRUGS (8)
  1. PROLIA [Suspect]
     Indication: OSTEOPOROSIS POSTMENOPAUSAL
     Dosage: 60 MG, Q6MO
     Dates: start: 20110609
  2. VITAMIN D [Concomitant]
  3. TIZANIDINE HCL [Concomitant]
  4. AGGRENOX [Concomitant]
  5. PROLIA [Suspect]
     Dosage: 60 MG, Q6MO
     Dates: start: 20101209
  6. CALCIUM CARBONATE [Concomitant]
  7. SIMVASTATIN [Concomitant]
  8. RAMIPRIL [Concomitant]

REACTIONS (2)
  - RASH ERYTHEMATOUS [None]
  - PAIN [None]
